FAERS Safety Report 6713136-7 (Version None)
Quarter: 2010Q2

REPORT INFORMATION
  Report Type: 
  Country: None (occurrence: None)
  Receive Date: 20100505
  Receipt Date: 20100505
  Transmission Date: 20101027
  Serious: Yes (Other)
  Sender: FDA-Public Use
  Company Number: None

PATIENT
  Sex: Male
  Weight: 9.0719 kg

DRUGS (1)
  1. MOTRIN [Suspect]
     Indication: PYREXIA
     Dosage: 1.25ML EVERY 6 HRS PO
     Route: 048
     Dates: start: 20100416, end: 20100501

REACTIONS (2)
  - HYPERSENSITIVITY [None]
  - PRODUCT QUALITY ISSUE [None]
